FAERS Safety Report 5460695-0 (Version None)
Quarter: 2007Q3

REPORT INFORMATION
  Report Type: 
  Country: None (occurrence: None)
  Receive Date: 20070918
  Receipt Date: 20070907
  Transmission Date: 20080115
  Serious: Yes (Hospitalization)
  Sender: FDA-Public Use
  Company Number: 2007BI014233

PATIENT
  Age: 56 Year
  Sex: Female
  Weight: 100 kg

DRUGS (5)
  1. AVONEX [Suspect]
     Indication: MULTIPLE SCLEROSIS
     Dosage: 30 UG;QW;IM
     Route: 030
     Dates: start: 20050101, end: 20070501
  2. NEBILET [Concomitant]
  3. MYDOCALM [Concomitant]
  4. MOVICOL [Concomitant]
  5. MAGNESIUM SULFATE [Concomitant]

REACTIONS (4)
  - DEPRESSED MOOD [None]
  - MUSCULOSKELETAL STIFFNESS [None]
  - PROGRESSIVE MULTIPLE SCLEROSIS [None]
  - WEIGHT INCREASED [None]
